FAERS Safety Report 7114226-X (Version None)
Quarter: 2010Q4

REPORT INFORMATION
  Report Type: 
  Country: None (occurrence: None)
  Receive Date: 20101119
  Receipt Date: 20101109
  Transmission Date: 20110411
  Serious: Yes (Other)
  Sender: FDA-Public Use
  Company Number: US-BAYER-201032096NA

PATIENT
  Age: 49 Year
  Sex: Female
  Weight: 75 kg

DRUGS (6)
  1. YAZ [Suspect]
     Indication: ORAL CONTRACEPTION
     Route: 048
     Dates: end: 20070817
  2. YASMIN [Suspect]
     Indication: PRODUCT USED FOR UNKNOWN INDICATION
  3. OCELLA [Suspect]
     Indication: PRODUCT USED FOR UNKNOWN INDICATION
  4. ELEXIPRIL [Concomitant]
     Indication: DEPRESSION
     Dates: start: 20050101
  5. TRIAMTERENE [Concomitant]
     Indication: DIURETIC THERAPY
     Dates: start: 19970101
  6. LEVOXYL [Concomitant]
     Indication: HYPOTHYROIDISM

REACTIONS (8)
  - BLADDER DISORDER [None]
  - CHEST PAIN [None]
  - DEEP VEIN THROMBOSIS [None]
  - GALLBLADDER DISORDER [None]
  - PAIN IN EXTREMITY [None]
  - UNEVALUABLE EVENT [None]
  - UTERINE DISORDER [None]
  - WEIGHT INCREASED [None]
